FAERS Safety Report 5947455-9 (Version None)
Quarter: 2008Q4

REPORT INFORMATION
  Report Type: 
  Country: None (occurrence: None)
  Receive Date: 20081110
  Receipt Date: 20081030
  Transmission Date: 20090506
  Serious: Yes (Other)
  Sender: FDA-Public Use
  Company Number: US-PFIZER INC-2008084669

PATIENT
  Sex: Male
  Weight: 97.5 kg

DRUGS (6)
  1. LIPITOR [Suspect]
     Indication: LOW DENSITY LIPOPROTEIN INCREASED
     Route: 048
     Dates: start: 20080801
  2. LIPITOR [Suspect]
     Indication: BLOOD CHOLESTEROL
  3. SYNTHROID [Concomitant]
  4. ASPIRIN [Concomitant]
  5. ALLOPURINOL [Concomitant]
  6. COLCHICINE [Concomitant]

REACTIONS (3)
  - EYE DISORDER [None]
  - REFRACTION DISORDER [None]
  - VISUAL ACUITY REDUCED [None]
